FAERS Safety Report 23368232 (Version 1)
Quarter: 2024Q1

REPORT INFORMATION
  Report Type: Spontaneous
  Country: US (occurrence: US)
  Receive Date: 20240105
  Receipt Date: 20240105
  Transmission Date: 20240410
  Serious: No
  Sender: FDA-Public Use
  Company Number: US-ELI_LILLY_AND_COMPANY-US202401002145

PATIENT
  Age: 59 Year
  Sex: Female

DRUGS (1)
  1. TRULICITY [Suspect]
     Active Substance: DULAGLUTIDE
     Indication: Product used for unknown indication
     Dosage: 4.5 MG, UNKNOWN
     Route: 065

REACTIONS (9)
  - Feeding disorder [Unknown]
  - Dyspnoea [Unknown]
  - Confusional state [Unknown]
  - Vision blurred [Unknown]
  - Dizziness [Unknown]
  - Dysstasia [Unknown]
  - Asthenia [Unknown]
  - Nausea [Unknown]
  - Abdominal pain upper [Unknown]

NARRATIVE: CASE EVENT DATE: 20240102
